FAERS Safety Report 5973705-9 (Version None)
Quarter: 2008Q4

REPORT INFORMATION
  Report Type: 
  Country: None (occurrence: None)
  Receive Date: 20081201
  Receipt Date: 20081117
  Transmission Date: 20090506
  Serious: Yes (Death, Hospitalization)
  Sender: FDA-Public Use
  Company Number: AT-GENENTECH-269758

PATIENT
  Sex: Male

DRUGS (6)
  1. BEVACIZUMAB [Suspect]
     Indication: COLON CANCER
     Dosage: 675 MG, Q3W
     Route: 042
     Dates: start: 20080108, end: 20080624
  2. CAPECITABINE [Suspect]
     Indication: COLON CANCER
     Dosage: 2500 MG, BID
     Route: 048
     Dates: start: 20080108
  3. CAPECITABINE [Suspect]
     Dosage: 712.5 MG, Q3W
     Route: 048
     Dates: start: 20080311, end: 20080624
  4. BLOPRESS [Concomitant]
     Indication: DRUG USE FOR UNKNOWN INDICATION
     Dosage: UNK
     Dates: start: 20050101
  5. FRAGMIN [Concomitant]
     Indication: DRUG USE FOR UNKNOWN INDICATION
     Dosage: UNK
     Dates: start: 20080720
  6. NEBIVOLOL [Concomitant]
     Indication: DRUG USE FOR UNKNOWN INDICATION
     Dosage: UNK
     Dates: start: 20050101

REACTIONS (1)
  - ACUTE RESPIRATORY DISTRESS SYNDROME [None]
